FAERS Safety Report 18116222 (Version 3)
Quarter: 2021Q2

REPORT INFORMATION
  Report Type: Spontaneous
  Country: AU (occurrence: AU)
  Receive Date: 20200805
  Receipt Date: 20210525
  Transmission Date: 20210717
  Serious: Yes (Hospitalization)
  Sender: FDA-Public Use
  Company Number: AU-CELGENEUS-AUS-20200800036

PATIENT
  Age: 66 Year
  Sex: Male
  Weight: 160 kg

DRUGS (64)
  1. AZACITIDINE. [Suspect]
     Active Substance: AZACITIDINE
     Dosage: 75 MILLIGRAM/SQ. METER
     Route: 058
     Dates: start: 20200728
  2. ENDONE [Concomitant]
     Active Substance: OXYCODONE HYDROCHLORIDE
     Indication: GOUT
     Dosage: 10?20 MG
     Route: 048
     Dates: start: 20191018, end: 20191024
  3. RYZODEG 70/30 [Concomitant]
     Active Substance: INSULIN ASPART\INSULIN DEGLUDEC
     Indication: TYPE 2 DIABETES MELLITUS
     Dosage: 70/30
     Route: 048
     Dates: start: 20191118
  4. COLCHICINE. [Concomitant]
     Active Substance: COLCHICINE
     Indication: ARTHRITIS
     Dosage: .5 MILLIGRAM
     Route: 048
     Dates: start: 20191030, end: 20191108
  5. ALLOPURINOL. [Concomitant]
     Active Substance: ALLOPURINOL
     Indication: PROPHYLAXIS
     Dosage: 300 MILLIGRAM
     Route: 048
     Dates: start: 20190522, end: 20190901
  6. TAZOCIN [Concomitant]
     Active Substance: PIPERACILLIN SODIUM\TAZOBACTAM SODIUM
     Indication: FEBRILE NEUTROPENIA
     Dosage: 4/0.5 G
     Route: 041
     Dates: start: 20200620, end: 20200713
  7. PERINDOPRIL [Concomitant]
     Active Substance: PERINDOPRIL
     Indication: BLOOD PRESSURE MEASUREMENT
     Dosage: 10 MILLIGRAM
     Route: 048
     Dates: start: 20190604
  8. METFORMINE [Concomitant]
     Active Substance: METFORMIN HYDROCHLORIDE
     Indication: TYPE 2 DIABETES MELLITUS
     Dosage: 2 GRAM
     Route: 048
     Dates: start: 201909
  9. INDOMETHACIN. [Concomitant]
     Active Substance: INDOMETHACIN
     Indication: ARTHRITIS
     Route: 048
     Dates: start: 20190901, end: 20190902
  10. COLCHICINE. [Concomitant]
     Active Substance: COLCHICINE
     Indication: ARTHRITIS
     Dosage: .5 MILLIGRAM
     Route: 048
     Dates: start: 20191018, end: 20191019
  11. COLCHICINE. [Concomitant]
     Active Substance: COLCHICINE
     Indication: GOUTY ARTHRITIS
     Dosage: .5 MILLIGRAM
     Route: 048
     Dates: start: 20191230, end: 20191230
  12. ALLOPURINOL. [Concomitant]
     Active Substance: ALLOPURINOL
     Indication: GOUT
     Dosage: 300 MILLIGRAM
     Route: 048
     Dates: start: 20190218, end: 20190225
  13. ALLOPURINOL. [Concomitant]
     Active Substance: ALLOPURINOL
     Dosage: 100 MILLIGRAM
     Route: 048
     Dates: start: 202001
  14. AMBISOME [Concomitant]
     Active Substance: AMPHOTERICIN B
     Indication: ANTIFUNGAL PROPHYLAXIS
     Dosage: 100 MILLIGRAM
     Route: 041
     Dates: start: 20190318, end: 20190513
  15. PREDNISONE. [Concomitant]
     Active Substance: PREDNISONE
     Indication: ARTHRITIS BACTERIAL
     Dosage: 25 MILLIGRAM
     Route: 048
     Dates: start: 20190827, end: 20190902
  16. PREDNISONE. [Concomitant]
     Active Substance: PREDNISONE
     Dosage: 25 MILLIGRAM
     Route: 048
     Dates: start: 20190918, end: 20190921
  17. PREDNISONE. [Concomitant]
     Active Substance: PREDNISONE
     Dosage: 50 MILLIGRAM
     Route: 048
     Dates: start: 20191030, end: 20191108
  18. AZACITIDINE. [Suspect]
     Active Substance: AZACITIDINE
     Route: 058
     Dates: start: 20191008, end: 20191009
  19. AZACITIDINE. [Suspect]
     Active Substance: AZACITIDINE
     Dosage: 50 MILLIGRAM/SQ. METER
     Route: 058
     Dates: start: 20191104, end: 20200303
  20. INDOMETHACIN. [Concomitant]
     Active Substance: INDOMETHACIN
     Indication: GOUT
     Dosage: 600 MILLIGRAM
     Route: 048
     Dates: start: 20190918, end: 20190930
  21. PROTAPHANE [Concomitant]
     Active Substance: INSULIN HUMAN
     Indication: DIABETES MELLITUS
     Route: 030
     Dates: start: 20191119
  22. NOVORAPID [Concomitant]
     Active Substance: INSULIN ASPART
     Indication: HYPERGLYCAEMIA
  23. DOCUSATE SENNA [Concomitant]
     Indication: CONSTIPATION PROPHYLAXIS
     Dosage: 100 MILLIGRAM
     Route: 048
     Dates: start: 20200630
  24. VALACYCLOVIR [Concomitant]
     Active Substance: VALACYCLOVIR HYDROCHLORIDE
     Dosage: 1000 MILLIGRAM
     Route: 048
     Dates: start: 20200708, end: 20200715
  25. PREDNISONE. [Concomitant]
     Active Substance: PREDNISONE
     Indication: ARTHRITIS
     Dosage: 25 MILLIGRAM
     Route: 048
     Dates: start: 20190607, end: 20190609
  26. PREDNISONE. [Concomitant]
     Active Substance: PREDNISONE
     Dosage: 10?50 MG
     Route: 048
     Dates: start: 20200101
  27. AZACITIDINE. [Suspect]
     Active Substance: AZACITIDINE
     Indication: MYELODYSPLASTIC SYNDROME
     Dosage: 75 MILLIGRAM/SQ. METER
     Route: 058
     Dates: start: 20190218, end: 20190730
  28. AZACITIDINE. [Suspect]
     Active Substance: AZACITIDINE
     Dosage: 75 MILLIGRAM/SQ. METER
     Route: 058
     Dates: start: 20200512, end: 20200617
  29. PARACETAMOL [Concomitant]
     Active Substance: ACETAMINOPHEN
     Indication: ARTHRITIS
     Route: 048
     Dates: start: 20190918, end: 20190930
  30. ALLOPURINOL. [Concomitant]
     Active Substance: ALLOPURINOL
     Dosage: 600 MILLIGRAM
     Route: 048
     Dates: start: 20190902, end: 20191111
  31. AUGMENTIN [Concomitant]
     Active Substance: AMOXICILLIN\CLAVULANATE POTASSIUM
     Indication: INFECTION
  32. VALACYCLOVIR [Concomitant]
     Active Substance: VALACYCLOVIR HYDROCHLORIDE
     Indication: SEPSIS
     Dosage: 500 MILLIGRAM
     Route: 048
     Dates: start: 20190918
  33. AZACITIDINE. [Suspect]
     Active Substance: AZACITIDINE
     Dosage: 50 MILLIGRAM/SQ. METER
     Route: 058
     Dates: start: 20190902, end: 20191004
  34. VENETOCLAX. [Concomitant]
     Active Substance: VENETOCLAX
     Indication: MYELODYSPLASTIC SYNDROME
     Dosage: 40 MILLIGRAM
     Route: 048
     Dates: start: 20190218, end: 20200622
  35. VENETOCLAX. [Concomitant]
     Active Substance: VENETOCLAX
     Dosage: 40 MILLIGRAM
     Route: 048
     Dates: start: 20200728
  36. INDOMETHACIN. [Concomitant]
     Active Substance: INDOMETHACIN
     Dosage: 20 TO 50 MG
     Route: 048
     Dates: start: 20191112
  37. PROTAPHANE [Concomitant]
     Active Substance: INSULIN HUMAN
     Indication: HYPERGLYCAEMIA
  38. NOVORAPID [Concomitant]
     Active Substance: INSULIN ASPART
     Indication: DIABETES MELLITUS
     Route: 030
     Dates: start: 20191119
  39. PARACETAMOL [Concomitant]
     Active Substance: ACETAMINOPHEN
     Indication: GOUT
     Route: 048
     Dates: start: 20191018, end: 20191024
  40. GLICLAZIDE [Concomitant]
     Active Substance: GLICLAZIDE
     Indication: TYPE 2 DIABETES MELLITUS
     Dosage: 60 MILLIGRAM
     Route: 048
     Dates: start: 20191118
  41. DOCUSATE SENNA [Concomitant]
     Indication: CONSTIPATION
     Route: 048
     Dates: start: 20200613, end: 20200615
  42. AMBISOME [Concomitant]
     Active Substance: AMPHOTERICIN B
     Dosage: 100 MILLIGRAM
     Route: 041
     Dates: start: 20190513
  43. AUGMENTIN [Concomitant]
     Active Substance: AMOXICILLIN\CLAVULANATE POTASSIUM
     Indication: ANORECTAL INFECTION
     Dosage: 2.2 GRAM
     Route: 041
     Dates: start: 20200615, end: 20200616
  44. PREDNISONE. [Concomitant]
     Active Substance: PREDNISONE
     Route: 048
     Dates: start: 20191209, end: 20191229
  45. CRESTOR [Concomitant]
     Active Substance: ROSUVASTATIN CALCIUM
     Indication: HYPERLIPIDAEMIA
     Route: 048
     Dates: start: 2015
  46. RESPRIM [Concomitant]
     Active Substance: SULFAMETHOXAZOLE\TRIMETHOPRIM
     Indication: PROPHYLAXIS
     Dosage: 400/80 MG
     Route: 048
     Dates: start: 20190218
  47. MAXOLON [Concomitant]
     Active Substance: METOCLOPRAMIDE HYDROCHLORIDE
     Indication: PROPHYLAXIS OF NAUSEA AND VOMITING
     Dosage: D1?5 AND D8?9 EACH CYCLE, PLUS 10MG TDS PRN (10 MG)
     Route: 048
     Dates: start: 20190211
  48. INDOMETHACIN. [Concomitant]
     Active Substance: INDOMETHACIN
     Indication: GOUT
     Route: 048
     Dates: start: 20190617, end: 20190709
  49. PARACETAMOL [Concomitant]
     Active Substance: ACETAMINOPHEN
     Route: 048
     Dates: start: 20191209
  50. ALLOPURINOL. [Concomitant]
     Active Substance: ALLOPURINOL
     Dosage: 300 MILLIGRAM
     Route: 048
     Dates: start: 20191112, end: 202001
  51. AUGMENTIN [Concomitant]
     Active Substance: AMOXICILLIN\CLAVULANATE POTASSIUM
     Indication: SEPSIS
     Dosage: 875/125 MG
     Route: 048
     Dates: start: 20200711, end: 20200716
  52. TRULICITY [Concomitant]
     Active Substance: DULAGLUTIDE
     Indication: DIABETES MELLITUS
     Dosage: .2143 MILLIGRAM
     Route: 058
     Dates: start: 20190725
  53. PREDNISONE. [Concomitant]
     Active Substance: PREDNISONE
     Dosage: 50 MILLIGRAM
     Route: 048
     Dates: start: 20191228, end: 20191228
  54. ULTIBRO [Concomitant]
     Active Substance: GLYCOPYRRONIUM\INDACATEROL
     Indication: CHRONIC OBSTRUCTIVE PULMONARY DISEASE
     Dosage: 110/50 UG
     Route: 055
     Dates: start: 201506
  55. ENDONE [Concomitant]
     Active Substance: OXYCODONE HYDROCHLORIDE
     Indication: ARTHRITIS
     Route: 048
     Dates: start: 20191209
  56. COLCHICINE. [Concomitant]
     Active Substance: COLCHICINE
     Dosage: 0.5 TO 1 MG
     Route: 048
     Dates: start: 20200119
  57. DUODART [Concomitant]
     Active Substance: DUTASTERIDE\TAMSULOSIN
     Indication: SEPSIS
     Dosage: 0.5/0.4 MG
     Route: 048
     Dates: start: 20200707
  58. PREDNISONE. [Concomitant]
     Active Substance: PREDNISONE
     Indication: GOUT
     Dosage: 25 MILLIGRAM
     Route: 048
     Dates: start: 20190507, end: 20190521
  59. PREDNISONE. [Concomitant]
     Active Substance: PREDNISONE
     Dosage: 25 MILLIGRAM
     Route: 048
     Dates: start: 20190923, end: 20190929
  60. PREDNISONE. [Concomitant]
     Active Substance: PREDNISONE
     Dosage: 50 MILLIGRAM
     Route: 048
     Dates: start: 20191101, end: 20191108
  61. VITAMIN D [Concomitant]
     Active Substance: VITAMIN D NOS
     Indication: SUPPLEMENTATION THERAPY
     Dosage: 25 MICROGRAM
     Route: 048
     Dates: start: 201908
  62. INDOMETHACIN. [Concomitant]
     Active Substance: INDOMETHACIN
     Dosage: 80 MILLIGRAM
     Route: 048
     Dates: start: 20191020, end: 20191028
  63. AUGMENTIN [Concomitant]
     Active Substance: AMOXICILLIN\CLAVULANATE POTASSIUM
     Indication: FEBRILE NEUTROPENIA
     Dosage: 1000 MILLIGRAM
     Route: 048
     Dates: start: 20200616, end: 20200616
  64. VANCOMYCIN [Concomitant]
     Active Substance: VANCOMYCIN
     Indication: FEBRILE NEUTROPENIA
     Dosage: 500 MILLIGRAM
     Route: 041
     Dates: start: 20200629, end: 20200629

REACTIONS (1)
  - Anorectal infection [Recovered/Resolved]

NARRATIVE: CASE EVENT DATE: 20200721
